FAERS Safety Report 7585016-9 (Version None)
Quarter: 2011Q2

REPORT INFORMATION
  Report Type: 
  Country: None (occurrence: None)
  Receive Date: 20110630
  Receipt Date: 20110629
  Transmission Date: 20111010
  Serious: Yes (Other)
  Sender: FDA-Public Use
  Company Number: DE-MERCK-1106DEU00133

PATIENT
  Age: 52 Year
  Sex: Male

DRUGS (1)
  1. FOSAMAX [Suspect]
     Route: 048
     Dates: start: 20070401, end: 20080401

REACTIONS (3)
  - OSTEONECROSIS OF JAW [None]
  - TOOTH EXTRACTION [None]
  - ALVEOLITIS [None]
